FAERS Safety Report 7548780-0 (Version None)
Quarter: 2011Q2

REPORT INFORMATION
  Report Type: 
  Country: None (occurrence: None)
  Receive Date: 20110615
  Receipt Date: 20110531
  Transmission Date: 20111010
  Serious: No
  Sender: FDA-Public Use
  Company Number: US-B.I. PHARMACEUTICALS,INC./RIDGEFIELD-2011-BP-14423BP

PATIENT
  Sex: Male

DRUGS (13)
  1. MICARDIS [Suspect]
     Indication: HYPERTENSION
     Dosage: 40 MG
     Route: 048
  2. RANITIDINE [Concomitant]
     Indication: GASTRIC DISORDER
     Dosage: 600 MG
  3. COUMADIN [Concomitant]
     Indication: STENT PLACEMENT
     Dosage: 2 MG
  4. TEKTURNA [Concomitant]
     Indication: HYPERTENSION
     Dosage: 150 MG
  5. TERAZOSIN HCL [Concomitant]
     Indication: HYPERTENSION
  6. AVODART [Concomitant]
     Indication: PROSTATOMEGALY
     Dosage: 0.5 MG
  7. CRESTOR [Concomitant]
     Indication: BLOOD CHOLESTEROL INCREASED
     Dosage: 5 MG
  8. CHLORTHALIDONE [Concomitant]
     Indication: HYPERTENSION
  9. SYNTHROID [Concomitant]
     Indication: HYPOTHYROIDISM
     Dosage: 0.05 MG
  10. AMLODIPINE [Concomitant]
     Indication: CARDIAC DISORDER
  11. POTASSIUM CHLORIDE [Concomitant]
     Indication: SUPPLEMENTATION THERAPY
     Dosage: 10 MEQ
  12. AMLODIPINE [Concomitant]
     Indication: HYPERTENSION
     Dosage: 5 MG
  13. CLONAZEPAM [Concomitant]
     Indication: SLEEP DISORDER

REACTIONS (7)
  - DIZZINESS [None]
  - ASTHENIA [None]
  - NERVOUSNESS [None]
  - TREMOR [None]
  - HEADACHE [None]
  - GAIT DISTURBANCE [None]
  - VISION BLURRED [None]
